APPROVED DRUG PRODUCT: DESOWEN
Active Ingredient: DESONIDE
Strength: 0.05%
Dosage Form/Route: LOTION;TOPICAL
Application: A072354 | Product #001
Applicant: GALDERMA LABORATORIES LP
Approved: Jan 24, 1992 | RLD: No | RS: No | Type: DISCN